FAERS Safety Report 12827825 (Version 1)
Quarter: 2016Q4

REPORT INFORMATION
  Report Type: Spontaneous
  Country: US (occurrence: US)
  Receive Date: 20161006
  Receipt Date: 20161006
  Transmission Date: 20170207
  Serious: No
  Sender: FDA-Public Use
  Company Number: US-ASTRAZENECA-2016SF05014

PATIENT
  Age: 83 Year
  Sex: Male
  Weight: 68 kg

DRUGS (9)
  1. NUPLAZID [Suspect]
     Active Substance: PIMAVANSERIN TARTRATE
     Indication: DELUSION
     Route: 065
     Dates: start: 20160914, end: 20160918
  2. WATER PILLS [Concomitant]
     Active Substance: UNSPECIFIED INGREDIENT
  3. PROTONIX [Concomitant]
     Active Substance: PANTOPRAZOLE SODIUM
  4. REQUIP XL [Concomitant]
     Active Substance: ROPINIROLE HYDROCHLORIDE
  5. UROCIT-K [Concomitant]
     Active Substance: POTASSIUM CITRATE
  6. SEROQUEL [Suspect]
     Active Substance: QUETIAPINE FUMARATE
     Dosage: UNKNOWN
     Route: 048
  7. NUPLAZID [Suspect]
     Active Substance: PIMAVANSERIN TARTRATE
     Indication: HALLUCINATION
     Route: 065
     Dates: start: 20160914, end: 20160918
  8. LEVODOPA [Concomitant]
     Active Substance: LEVODOPA
  9. CARBIDOPA. [Concomitant]
     Active Substance: CARBIDOPA

REACTIONS (6)
  - Gait disturbance [Unknown]
  - Disorientation [Unknown]
  - Delusion [Unknown]
  - Hallucination [Unknown]
  - Incontinence [Unknown]
  - Parkinson^s disease [Unknown]
